FAERS Safety Report 6439819-4 (Version None)
Quarter: 2009Q4

REPORT INFORMATION
  Report Type: 
  Country: None (occurrence: None)
  Receive Date: 20091113
  Receipt Date: 20091104
  Transmission Date: 20100525
  Serious: Yes (Hospitalization)
  Sender: FDA-Public Use
  Company Number: US-ASTRAZENECA-2009SE24337

PATIENT
  Sex: Female

DRUGS (8)
  1. TOPROL-XL [Suspect]
     Indication: HYPERTENSION
     Route: 048
     Dates: start: 20090801
  2. LISINOPRIL [Concomitant]
     Route: 048
  3. LASIX [Concomitant]
     Route: 048
  4. SPIRONOLACTONE [Concomitant]
     Route: 048
  5. ASPIRIN [Concomitant]
     Route: 048
  6. SINGULAIR [Concomitant]
     Route: 048
  7. DUONEB [Concomitant]
  8. ALBUTEROL [Concomitant]

REACTIONS (1)
  - LOWER RESPIRATORY TRACT INFECTION [None]
